FAERS Safety Report 15056349 (Version 1)
Quarter: 2018Q2

REPORT INFORMATION
  Report Type: Spontaneous
  Country: US (occurrence: US)
  Receive Date: 20180603
  Receipt Date: 20180603
  Transmission Date: 20180711
  Serious: Yes (Other)
  Sender: FDA-Public Use
  Company Number: None

PATIENT
  Age: 58 Year
  Sex: Female
  Weight: 101.7 kg

DRUGS (6)
  1. CYANOCOBALAMIN. [Concomitant]
     Active Substance: CYANOCOBALAMIN
     Dates: start: 20100101
  2. LIALDA [Concomitant]
     Active Substance: MESALAMINE
     Dates: start: 20180101
  3. IMURAN [Concomitant]
     Active Substance: AZATHIOPRINE
     Dates: start: 20160101
  4. MYRBETRIQ [Concomitant]
     Active Substance: MIRABEGRON
     Dates: start: 20160101
  5. RALOXIFEN [Suspect]
     Active Substance: RALOXIFENE
     Indication: BREAST CANCER
     Route: 048
     Dates: start: 20180507, end: 20180518
  6. GABAPENTIN. [Concomitant]
     Active Substance: GABAPENTIN
     Dates: start: 20180420

REACTIONS (2)
  - Hyperhidrosis [None]
  - Dizziness [None]

NARRATIVE: CASE EVENT DATE: 20180521
